FAERS Safety Report 10426431 (Version 2)
Quarter: 2014Q3

REPORT INFORMATION
  Report Type: Spontaneous
  Country: NL (occurrence: NL)
  Receive Date: 20140903
  Receipt Date: 20140923
  Transmission Date: 20150326
  Serious: Yes (Hospitalization, Other)
  Sender: FDA-Public Use
  Company Number: NL-ALEXION PHARMACEUTICALS INC.-A201403205

PATIENT

DRUGS (3)
  1. SOLIRIS [Suspect]
     Active Substance: ECULIZUMAB
     Indication: OFF LABEL USE
  2. SOLIRIS [Suspect]
     Active Substance: ECULIZUMAB
     Indication: ESCHERICHIA TEST POSITIVE
  3. SOLIRIS [Suspect]
     Active Substance: ECULIZUMAB
     Indication: HAEMOLYTIC URAEMIC SYNDROME
     Dosage: 300 MG, UNK
     Route: 042

REACTIONS (14)
  - Hypotonia [Unknown]
  - Hypotension [Unknown]
  - Crying [Unknown]
  - Dystonia [Unknown]
  - Necrosis [Unknown]
  - Choroidal infarction [Unknown]
  - Gliosis [Unknown]
  - Nystagmus [Unknown]
  - Blindness [Unknown]
  - Optic atrophy [Unknown]
  - Renal disorder [Unknown]
  - Cerebral ischaemia [Unknown]
  - Retinal infarction [Unknown]
  - Off label use [Unknown]
